FAERS Safety Report 26210587 (Version 1)
Quarter: 2025Q4

REPORT INFORMATION
  Report Type: Spontaneous
  Country: US (occurrence: US)
  Receive Date: 20251230
  Receipt Date: 20251230
  Transmission Date: 20260117
  Serious: Yes (Death, Other)
  Sender: AMGEN
  Company Number: US-AMGEN-USASP2025255834

PATIENT

DRUGS (4)
  1. BLINATUMOMAB [Suspect]
     Active Substance: BLINATUMOMAB
     Indication: B precursor type acute leukaemia
     Dosage: UNK
     Route: 065
  2. BLINATUMOMAB [Suspect]
     Active Substance: BLINATUMOMAB
     Indication: Philadelphia chromosome positive
  3. PONATINIB [Concomitant]
     Active Substance: PONATINIB
     Indication: B precursor type acute leukaemia
     Dosage: 30 MILLIGRAM, QD
  4. PONATINIB [Concomitant]
     Active Substance: PONATINIB
     Indication: Philadelphia chromosome positive

REACTIONS (16)
  - Acute lymphocytic leukaemia recurrent [Fatal]
  - Haemorrhage intracranial [Fatal]
  - Megacolon [Fatal]
  - Respiratory failure [Fatal]
  - Post procedural haemorrhage [Fatal]
  - Intracranial aneurysm [Fatal]
  - Lipase increased [Unknown]
  - Alanine aminotransferase increased [Unknown]
  - Febrile neutropenia [Unknown]
  - Hypertension [Unknown]
  - Pneumonia [Unknown]
  - Neuropathy peripheral [Recovered/Resolved]
  - Memory impairment [Recovered/Resolved]
  - Tremor [Unknown]
  - Paraesthesia [Unknown]
  - Dizziness [Unknown]
